FAERS Safety Report 7867466 (Version 3)
Quarter: 2014Q3

REPORT INFORMATION
  Report Type: Report from Study
  Country: US (occurrence: US)
  Receive Date: 20110323
  Receipt Date: 20140702
  Transmission Date: 20150326
  Serious: Yes (Hospitalization, Other)
  Sender: FDA-Public Use
  Company Number: US-ALEXION-A201000467

PATIENT

DRUGS (12)
  1. SOLIRIS [Suspect]
     Active Substance: ECULIZUMAB
     Indication: PAROXYSMAL NOCTURNAL HAEMOGLOBINURIA
     Dosage: 900 MG, Q2W
     Route: 042
     Dates: start: 20091016
  2. LOVENOX [Concomitant]
     Active Substance: ENOXAPARIN SODIUM
     Indication: PAROXYSMAL NOCTURNAL HAEMOGLOBINURIA
     Dosage: 60 MG, BID
     Route: 058
     Dates: start: 2010, end: 201012
  3. PRENATAL VITAMINS                  /01549301/ [Concomitant]
     Active Substance: VITAMINS
     Dosage: UNK
     Route: 048
  4. SOLIRIS [Suspect]
     Active Substance: ECULIZUMAB
     Dosage: 600 MG, QW
     Route: 042
     Dates: start: 2009
  5. PREDNISONE. [Concomitant]
     Active Substance: PREDNISONE
     Indication: PAROXYSMAL NOCTURNAL HAEMOGLOBINURIA
     Dosage: 40 MG TAPER, 20 MG QD
     Route: 048
     Dates: start: 20100208, end: 20100610
  6. FOLIC ACID. [Concomitant]
     Active Substance: FOLIC ACID
     Indication: PAROXYSMAL NOCTURNAL HAEMOGLOBINURIA
     Dosage: 1 MG, QD
     Route: 048
     Dates: start: 2009
  7. SOLIRIS [Suspect]
     Active Substance: ECULIZUMAB
     Dosage: 900 MG, Q2W
     Route: 042
     Dates: start: 2011
  8. IRON [Concomitant]
     Active Substance: IRON
     Dosage: UNK
     Route: 048
  9. SOLIRIS [Suspect]
     Active Substance: ECULIZUMAB
     Dosage: 1200 MG, Q2W
     Route: 042
     Dates: start: 20100906, end: 20130822
  10. ASCORBIC ACID. [Concomitant]
     Active Substance: ASCORBIC ACID
     Route: 065
  11. PREDNISONE. [Concomitant]
     Active Substance: PREDNISONE
     Dosage: 20 MG, QD
     Route: 048
     Dates: start: 201006, end: 20100915
  12. LOVENOX [Concomitant]
     Active Substance: ENOXAPARIN SODIUM
     Indication: PREGNANCY

REACTIONS (24)
  - Hypoaesthesia [Not Recovered/Not Resolved]
  - Fatigue [Unknown]
  - Haemoglobinuria [Recovering/Resolving]
  - Headache [Not Recovered/Not Resolved]
  - Paraesthesia [Not Recovered/Not Resolved]
  - Haematuria [Recovered/Resolved]
  - Epistaxis [Recovered/Resolved]
  - Chest pain [Recovered/Resolved]
  - Haemoglobin decreased [Unknown]
  - Pain in extremity [Not Recovered/Not Resolved]
  - Haemolysis [Unknown]
  - Gingival bleeding [Recovered/Resolved]
  - Nervousness [Recovered/Resolved]
  - Dysphagia [Unknown]
  - Aplastic anaemia [Unknown]
  - Exposure during pregnancy [Recovered/Resolved]
  - Palpitations [Recovered/Resolved]
  - Myelodysplastic syndrome [Unknown]
  - Fatigue [Recovered/Resolved]
  - Oesophageal haemorrhage [Recovered/Resolved]
  - Back pain [Not Recovered/Not Resolved]
  - Drug ineffective [Recovered/Resolved]
  - Oropharyngeal pain [Not Recovered/Not Resolved]
  - Abdominal pain [Recovered/Resolved]

NARRATIVE: CASE EVENT DATE: 2010
